FAERS Safety Report 8621622-8 (Version None)
Quarter: 2012Q3

REPORT INFORMATION
  Report Type: 
  Country: None (occurrence: None)
  Receive Date: 20120820
  Receipt Date: 20120820
  Transmission Date: 20120928
  Serious: Yes (Life-Threatening, Other)
  Sender: FDA-Public Use
  Company Number: None

PATIENT
  Age: 49 Year
  Sex: Female
  Weight: 97.6 kg

DRUGS (17)
  1. CEFAZOLIN [Concomitant]
  2. CELECOXIB [Concomitant]
  3. DOCUSATE [Concomitant]
  4. LEVOTHYROXINE SODIUM [Concomitant]
  5. MORPHINE [Concomitant]
  6. ACETAMINOPHEN [Concomitant]
  7. RIVAROXABAN 10 MG JANSSEN PHARMACEUTICALS, [Suspect]
     Indication: THROMBOSIS PROPHYLAXIS
     Dates: start: 20120413, end: 20120413
  8. WARFARIN SODIUM [Concomitant]
  9. BISACODYL [Concomitant]
  10. CHOLECALCIFEROL [Concomitant]
  11. ONDANSETRON [Concomitant]
  12. PREGABALIN [Concomitant]
  13. ACETAMINOPHEN AND HYDROCODONE [Concomitant]
  14. AMITRIPTYLINE HYDROCHLORIDE [Concomitant]
  15. ENOXAPARIN [Concomitant]
  16. FENTANYL [Concomitant]
  17. HYDROMORPHONE HCL [Concomitant]

REACTIONS (4)
  - PULMONARY EMBOLISM [None]
  - PYREXIA [None]
  - TACHYCARDIA [None]
  - HYPERHIDROSIS [None]
